FAERS Safety Report 4436619-1 (Version None)
Quarter: 2004Q3

REPORT INFORMATION
  Report Type: 
  Country: None (occurrence: None)
  Receive Date: 20040830
  Receipt Date: 20040720
  Transmission Date: 20050211
  Serious: Yes (Other)
  Sender: FDA-Public Use
  Company Number: US-BRISTOL-MYERS SQUIBB COMPANY-12646089

PATIENT
  Age: 26 Year
  Sex: Male
  Weight: 136 kg

DRUGS (6)
  1. ABILIFY [Suspect]
     Indication: DEPRESSION
     Route: 048
     Dates: start: 20040101
  2. ABILIFY [Suspect]
     Indication: AMNESIA
     Route: 048
     Dates: start: 20040101
  3. LORAZEPAM [Concomitant]
  4. NEURONTIN [Concomitant]
  5. ATIVAN [Concomitant]
  6. LEXAPRO [Concomitant]

REACTIONS (3)
  - CONVULSION [None]
  - INSOMNIA [None]
  - WEIGHT INCREASED [None]
